FAERS Safety Report 5202573-8 (Version None)
Quarter: 2006Q4

REPORT INFORMATION
  Report Type: 
  Country: None (occurrence: None)
  Receive Date: 20061018
  Receipt Date: 20041213
  Transmission Date: 20070319
  Serious: Yes (Other)
  Sender: FDA-Public Use
  Company Number: PHEH2004US11904

PATIENT
  Age: 69 Year
  Sex: Female
  Weight: 64.4 kg

DRUGS (4)
  1. ZOMETA [Suspect]
     Indication: BREAST CANCER METASTATIC
     Dosage: 4 MG, QMO, UNK
     Dates: start: 20030911
  2. FASLODEX [Concomitant]
  3. ARANESP [Concomitant]
  4. ARIMIDEX ^ZENECA^ (ANASTROZOLE) [Concomitant]

REACTIONS (4)
  - DIZZINESS [None]
  - EAR CONGESTION [None]
  - METASTATIC NEOPLASM [None]
  - TINNITUS [None]
